FAERS Safety Report 20541534 (Version 2)
Quarter: 2022Q1

REPORT INFORMATION
  Report Type: Spontaneous
  Country: DK (occurrence: FO)
  Receive Date: 20220302
  Receipt Date: 20220310
  Transmission Date: 20220423
  Serious: Yes (Other)
  Sender: FDA-Public Use
  Company Number: DK-JNJFOC-20211218771

PATIENT

DRUGS (1)
  1. DARZALEX [Suspect]
     Active Substance: DARATUMUMAB
     Indication: Product used for unknown indication
     Route: 065

REACTIONS (2)
  - Arrhythmia [Unknown]
  - Diarrhoea [Unknown]
